FAERS Safety Report 8421302-8 (Version None)
Quarter: 2012Q2

REPORT INFORMATION
  Report Type: 
  Country: None (occurrence: None)
  Receive Date: 20120608
  Receipt Date: 20120529
  Transmission Date: 20120825
  Serious: Yes (Hospitalization)
  Sender: FDA-Public Use
  Company Number: US-AMGEN-USASP2012033566

PATIENT
  Age: 73 Year
  Sex: Male

DRUGS (2)
  1. ENBREL [Suspect]
     Indication: TYPE 2 DIABETES MELLITUS
     Dosage: 50 MG, QWK
     Dates: start: 20040101, end: 20100101
  2. ENBREL [Suspect]
     Indication: RHEUMATOID ARTHRITIS

REACTIONS (10)
  - POOR PERIPHERAL CIRCULATION [None]
  - OSTEOMYELITIS [None]
  - SKIN ULCER [None]
  - VASCULAR OCCLUSION [None]
  - SPINAL OSTEOARTHRITIS [None]
  - EXOSTOSIS [None]
  - IMPAIRED HEALING [None]
  - BLOOD BLISTER [None]
  - GANGRENE [None]
  - RHEUMATOID ARTHRITIS [None]
